FAERS Safety Report 8844424 (Version 1)
Quarter: 2012Q4

REPORT INFORMATION
  Report Type: 
  Country: CN (occurrence: CN)
  Receive Date: 20121017
  Receipt Date: 20121017
  Transmission Date: 20130627
  Serious: Yes (Death, Other)
  Sender: FDA-Public Use
  Company Number: PHHY2012CN091309

PATIENT
  Age: 30 Year
  Sex: Male

DRUGS (11)
  1. CICLOSPORIN [Suspect]
     Indication: PROPHYLAXIS AGAINST GRAFT VERSUS HOST DISEASE
     Dosage: 1.5 mg/kg, over 24 hours
  2. CICLOSPORIN [Suspect]
     Route: 048
  3. METHOTREXATE [Concomitant]
     Indication: PROPHYLAXIS AGAINST GRAFT VERSUS HOST DISEASE
     Dosage: 15 mg/m2, on day +1
     Route: 042
  4. METHOTREXATE [Concomitant]
     Dosage: 10 mg/m2, on day +3, +6 and +11
     Route: 042
  5. GRANULOCYTE COLONY STIMULATING FACTOR [Concomitant]
  6. FLUCONAZOLE [Concomitant]
     Indication: ANTIFUNGAL PROPHYLAXIS
  7. GANCICLOVIR [Concomitant]
     Indication: ANTIVIRAL PROPHYLAXIS
  8. MESNA [Concomitant]
     Indication: PROPHYLAXIS
  9. GAMMA GLOBULIN [Concomitant]
     Indication: PROPHYLAXIS
     Route: 041
  10. BUSULFAN [Concomitant]
     Indication: SURGICAL PRECONDITIONING
  11. CYCLOPHOSPHAMIDE [Concomitant]
     Indication: SURGICAL PRECONDITIONING

REACTIONS (5)
  - Organ failure [Fatal]
  - Infection [Fatal]
  - Cystitis haemorrhagic [Unknown]
  - Acute myeloid leukaemia [Unknown]
  - Myelodysplastic syndrome transformation [Unknown]
